FAERS Safety Report 6491303-8 (Version None)
Quarter: 2009Q4

REPORT INFORMATION
  Report Type: 
  Country: None (occurrence: None)
  Receive Date: 20091207
  Receipt Date: 20091120
  Transmission Date: 20100525
  Serious: Yes (Hospitalization)
  Sender: FDA-Public Use
  Company Number: 2009AL007417

PATIENT
  Age: 70 Year
  Sex: Male

DRUGS (3)
  1. OXAZEPAM CAPSULES USP, 15 MG (PUREPAC) (OXAZEPAM CAPSULES USP, 15 MG ( [Suspect]
     Dosage: 15 MG; PO
     Route: 048
  2. NITRAZEPAM [Concomitant]
  3. MORPHINE [Concomitant]

REACTIONS (13)
  - APNOEIC ATTACK [None]
  - COUGH [None]
  - CYANOSIS [None]
  - DRUG TOXICITY [None]
  - HYPERHIDROSIS [None]
  - LOSS OF CONSCIOUSNESS [None]
  - MIOSIS [None]
  - PNEUMONIA ASPIRATION [None]
  - RESPIRATORY ACIDOSIS [None]
  - RESPIRATORY FAILURE [None]
  - SOMNOLENCE [None]
  - SUICIDE ATTEMPT [None]
  - TACHYPNOEA [None]
